FAERS Safety Report 23036058 (Version 1)
Quarter: 2023Q4

REPORT INFORMATION
  Report Type: Spontaneous
  Country: US (occurrence: US)
  Receive Date: 20231006
  Receipt Date: 20231006
  Transmission Date: 20240110
  Serious: No
  Sender: FDA-Public Use
  Company Number: US-TAKEDA-2023TUS095317

PATIENT

DRUGS (1)
  1. LIALDA [Suspect]
     Active Substance: MESALAMINE
     Indication: Colitis
     Dosage: UNK
     Route: 065

REACTIONS (2)
  - Insurance issue [Unknown]
  - Inability to afford medication [Unknown]
